FAERS Safety Report 8413634-4 (Version None)
Quarter: 2012Q2

REPORT INFORMATION
  Report Type: 
  Country: None (occurrence: None)
  Receive Date: 20120605
  Receipt Date: 20120525
  Transmission Date: 20120825
  Serious: Yes (Other)
  Sender: FDA-Public Use
  Company Number: GB-ROCHE-1072869

PATIENT
  Sex: Female
  Weight: 57.7 kg

DRUGS (1)
  1. VISMODEGIB [Suspect]
     Indication: BASAL CELL CARCINOMA
     Dosage: LAST DOSE PRIOR TO THE SAE ON 24/MAY/2012
     Route: 048
     Dates: start: 20120426

REACTIONS (1)
  - ASPARTATE AMINOTRANSFERASE INCREASED [None]
